FAERS Safety Report 10134440 (Version 1)
Quarter: 2014Q2

REPORT INFORMATION
  Report Type: Spontaneous
  Country: IT (occurrence: IT)
  Receive Date: 20140428
  Receipt Date: 20140428
  Transmission Date: 20141212
  Serious: Yes (Death, Other)
  Sender: FDA-Public Use
  Company Number: IT-PFIZER INC-2014113055

PATIENT
  Age: 43 Year
  Sex: Male

DRUGS (9)
  1. CABERGOLINE [Suspect]
     Indication: PITUITARY TUMOUR BENIGN
     Dosage: 1 MG, WEEKLY
  2. CABERGOLINE [Suspect]
     Dosage: 2 MG, WEEKLY
  3. CABERGOLINE [Suspect]
     Dosage: 3 MG, WEEKLY
  4. CABERGOLINE [Suspect]
     Dosage: 4 MG, WEEKLY
  5. OCTREOTIDE [Suspect]
     Indication: PITUITARY TUMOUR BENIGN
     Dosage: 0.1 MG, UNK
  6. OCTREOTIDE [Suspect]
     Dosage: 0.1 MG, 2X/DAY
     Route: 058
  7. OCTREOTIDE [Suspect]
     Dosage: 0.2 MG, 2X/DAY
  8. OCTREOTIDE [Suspect]
     Dosage: 0.2 MG, 3X/DAY
  9. OCTREOTIDE [Suspect]
     Dosage: 0.5 MG, 3X/DAY

REACTIONS (5)
  - Intracranial pressure increased [Fatal]
  - Intraventricular haemorrhage [Fatal]
  - Haemorrhage [Fatal]
  - Headache [Unknown]
  - Diplopia [Unknown]
